FAERS Safety Report 10908251 (Version 9)
Quarter: 2020Q4

REPORT INFORMATION
  Report Type: Spontaneous
  Country: US (occurrence: US)
  Receive Date: 20150312
  Receipt Date: 20201023
  Transmission Date: 20210113
  Serious: Yes (Hospitalization, Other)
  Sender: FDA-Public Use
  Company Number: US-PFIZER INC-2015082892

PATIENT
  Age: 73 Year
  Sex: Female
  Weight: 48 kg

DRUGS (10)
  1. LYRICA [Suspect]
     Active Substance: PREGABALIN
     Dosage: 150 MG, 3X/DAY
     Route: 048
  2. LYRICA [Suspect]
     Active Substance: PREGABALIN
     Indication: NEUROPATHY PERIPHERAL
     Dosage: 150 MG
     Dates: start: 2006
  3. ROPINIROLE. [Concomitant]
     Active Substance: ROPINIROLE
     Indication: RESTLESS LEGS SYNDROME
     Dosage: UNK
     Dates: start: 2006
  4. LYRICA [Suspect]
     Active Substance: PREGABALIN
     Indication: NECK PAIN
     Dosage: UNK, 2X/DAY (ONE AM AND ONE PM)
     Dates: start: 2013
  5. VITAMIN D NOS [Concomitant]
     Active Substance: VITAMIN D NOS
     Dosage: UNK
  6. LYRICA [Suspect]
     Active Substance: PREGABALIN
     Indication: RHEUMATOID ARTHRITIS
     Dosage: 250 MG, 2X/DAY
  7. HYDROCODONE [Concomitant]
     Active Substance: HYDROCODONE
     Indication: PAIN
     Dosage: UNK, AS NEEDED
     Dates: start: 200606
  8. LYRICA [Suspect]
     Active Substance: PREGABALIN
     Indication: JOINT EFFUSION
     Dosage: 150 MG, 2X/DAY
     Route: 048
  9. FLUTICASONE. [Concomitant]
     Active Substance: FLUTICASONE
     Indication: RHEUMATOID ARTHRITIS
  10. FLUTICASONE. [Concomitant]
     Active Substance: FLUTICASONE
     Indication: HYPERSENSITIVITY
     Dosage: UNK
     Dates: start: 2006

REACTIONS (28)
  - Gait disturbance [Recovered/Resolved]
  - Pain in extremity [Not Recovered/Not Resolved]
  - Skin ulcer [Not Recovered/Not Resolved]
  - Condition aggravated [Not Recovered/Not Resolved]
  - Paraesthesia [Recovered/Resolved]
  - Weight decreased [Recovered/Resolved]
  - Nervous system disorder [Recovered/Resolved]
  - Hallucination [Not Recovered/Not Resolved]
  - Syncope [Recovered/Resolved]
  - Limb fracture [Unknown]
  - Joint injury [Recovered/Resolved]
  - Ligament sprain [Recovered/Resolved]
  - Femur fracture [Unknown]
  - Therapeutic product effect incomplete [Unknown]
  - Allodynia [Recovered/Resolved]
  - Sciatica [Unknown]
  - Limb injury [Not Recovered/Not Resolved]
  - Fall [Recovered/Resolved]
  - Dyspnoea [Recovering/Resolving]
  - Hypokinesia [Not Recovered/Not Resolved]
  - Pain [Not Recovered/Not Resolved]
  - Choking [Not Recovered/Not Resolved]
  - Intentional product misuse [Unknown]
  - Insomnia [Not Recovered/Not Resolved]
  - Neuralgia [Not Recovered/Not Resolved]
  - Impaired healing [Not Recovered/Not Resolved]
  - Burning sensation [Recovered/Resolved]
  - Back injury [Recovered/Resolved]

NARRATIVE: CASE EVENT DATE: 2006
